FAERS Safety Report 7108790-4 (Version None)
Quarter: 2010Q4

REPORT INFORMATION
  Report Type: 
  Country: None (occurrence: None)
  Receive Date: 20101117
  Receipt Date: 20101109
  Transmission Date: 20110411
  Serious: Yes (Death)
  Sender: FDA-Public Use
  Company Number: IL-ACTELION-A-CH2010-41462

PATIENT
  Age: 4 Year
  Sex: Male

DRUGS (2)
  1. BOSENTAN TABLET UNKNOWN ROW MG [Suspect]
     Indication: PULMONARY HYPERTENSION
     Dosage: 62.5 MG, BID
     Route: 048
     Dates: start: 20080601
  2. SILDENAFIL CITRATE [Concomitant]

REACTIONS (1)
  - RESPIRATORY FAILURE [None]
